FAERS Safety Report 18001497 (Version 1)
Quarter: 2020Q3

REPORT INFORMATION
  Report Type: Spontaneous
  Country: GB (occurrence: GB)
  Receive Date: 20200709
  Receipt Date: 20200709
  Transmission Date: 20201103
  Serious: Yes (Hospitalization, Other)
  Sender: FDA-Public Use
  Company Number: GB-AMGEN-GBRSP2020105877

PATIENT
  Age: 62 Year
  Sex: Male

DRUGS (4)
  1. SIMVASTATIN. [Concomitant]
     Active Substance: SIMVASTATIN
  2. BEVACIZUMAB. [Suspect]
     Active Substance: BEVACIZUMAB
     Indication: DIABETIC RETINOPATHY
     Dosage: UNK
     Route: 031
     Dates: start: 20191003, end: 20191003
  3. INSULIN [Concomitant]
     Active Substance: INSULIN NOS
  4. METFORMIN [Concomitant]
     Active Substance: METFORMIN HYDROCHLORIDE

REACTIONS (8)
  - Vitreous haemorrhage [Recovering/Resolving]
  - Eyelid ptosis [Unknown]
  - Pain [Unknown]
  - Microvascular cranial nerve palsy [Recovered/Resolved with Sequelae]
  - Nausea [Unknown]
  - Eye movement disorder [Unknown]
  - Diplopia [Unknown]
  - Vomiting [Unknown]

NARRATIVE: CASE EVENT DATE: 201910
